FAERS Safety Report 4647853-X (Version None)
Quarter: 2005Q2

REPORT INFORMATION
  Report Type: 
  Country: None (occurrence: None)
  Receive Date: 20050428
  Receipt Date: 20050421
  Transmission Date: 20051028
  Serious: Yes (Other)
  Sender: FDA-Public Use
  Company Number: JP-GLAXOSMITHKLINE-B0379156A

PATIENT
  Sex: Female

DRUGS (10)
  1. VENETLIN [Suspect]
     Route: 048
     Dates: start: 20030515
  2. ASVERIN [Suspect]
     Route: 048
     Dates: start: 20030521
  3. BISOLVON [Suspect]
     Route: 048
     Dates: start: 20030521
  4. PERIACTIN [Suspect]
     Route: 048
     Dates: start: 20030521
  5. MEIACT [Suspect]
     Route: 048
     Dates: start: 20030518
  6. KENALOG [Suspect]
     Route: 061
  7. SOLITA-T NO.3 [Suspect]
     Indication: DEHYDRATION
     Route: 042
     Dates: start: 20030517
  8. FLORID [Suspect]
     Indication: CANDIDIASIS
     Route: 061
     Dates: start: 20030517
  9. UNASYN [Suspect]
     Route: 048
     Dates: start: 20030521
  10. HUSTAGIN [Suspect]
     Route: 048
     Dates: start: 20030521

REACTIONS (5)
  - COUGH [None]
  - DEHYDRATION [None]
  - SKIN LESION [None]
  - STEVENS-JOHNSON SYNDROME [None]
  - STOMATITIS [None]
